FAERS Safety Report 21520514 (Version 1)
Quarter: 2022Q4

REPORT INFORMATION
  Report Type: Spontaneous
  Country: US (occurrence: None)
  Receive Date: 20221027
  Receipt Date: 20221027
  Transmission Date: 20230112
  Serious: Yes (Hospitalization)
  Sender: FDA-Public Use
  Company Number: None

PATIENT
  Age: 87 Year
  Sex: Male
  Weight: 73.03 kg

DRUGS (1)
  1. GRALISE [Suspect]
     Active Substance: GABAPENTIN
     Indication: Restless legs syndrome
     Dosage: FREQUENCY : AT BEDTIME;?
     Route: 048
     Dates: start: 20220719, end: 20220719

REACTIONS (4)
  - Dizziness [None]
  - Asthenia [None]
  - Dizziness [None]
  - Gait disturbance [None]

NARRATIVE: CASE EVENT DATE: 20220719
